FAERS Safety Report 5228237-2 (Version None)
Quarter: 2007Q1

REPORT INFORMATION
  Report Type: 
  Country: None (occurrence: None)
  Receive Date: 20070205
  Receipt Date: 20070130
  Transmission Date: 20070707
  Serious: Yes (Death)
  Sender: FDA-Public Use
  Company Number: US-ELI_LILLY_AND_COMPANY-US200701006266

PATIENT
  Age: 55 Year
  Sex: Male

DRUGS (5)
  1. ZYPREXA ZYDIS [Suspect]
     Indication: BIPOLAR DISORDER
     Dosage: 10 MG, UNK
     Route: 048
     Dates: start: 20060201
  2. CYMBALTA [Suspect]
     Indication: BIPOLAR DISORDER
     Dosage: 90 MG, UNK
     Route: 048
     Dates: start: 20060201
  3. CYMBALTA [Suspect]
     Dosage: 60 MG, UNK
     Route: 048
  4. LAMICTAL [Concomitant]
     Dosage: 200 MG, UNK
  5. LEXAPRO [Concomitant]
     Dosage: 10 MG, UNK

REACTIONS (1)
  - DEATH [None]
